FAERS Safety Report 8005858-5 (Version None)
Quarter: 2011Q4

REPORT INFORMATION
  Report Type: 
  Country: None (occurrence: None)
  Receive Date: 20111223
  Receipt Date: 20111208
  Transmission Date: 20120403
  Serious: Yes (Death)
  Sender: FDA-Public Use
  Company Number: JP-ROCHE-1020533

PATIENT
  Sex: Male

DRUGS (6)
  1. CYCLOPHOSPHAMIDE [Concomitant]
     Indication: LYMPHOMA
     Route: 042
     Dates: start: 20110923
  2. ONCOVIN [Concomitant]
     Indication: LYMPHOMA
     Route: 042
     Dates: start: 20110923
  3. RITUXIMAB [Suspect]
     Indication: LYMPHOMA
     Dosage: 600MG/BODY
     Route: 042
     Dates: start: 20110929, end: 20110929
  4. PREDNISOLONE [Concomitant]
     Indication: LYMPHOMA
     Route: 048
     Dates: start: 20110923
  5. POLARAMINE [Concomitant]
     Dosage: SINGLE DOSE
     Route: 042
     Dates: start: 20110929, end: 20110929
  6. VOLTAREN [Concomitant]
     Dosage: SINGLE, SUPPOSITORY
     Dates: start: 20110929, end: 20110929

REACTIONS (1)
  - DEATH [None]
